FAERS Safety Report 10459832 (Version 1)
Quarter: 2014Q3

REPORT INFORMATION
  Report Type: Spontaneous
  Country: US (occurrence: US)
  Receive Date: 20140917
  Receipt Date: 20140917
  Transmission Date: 20150326
  Serious: Yes (Death)
  Sender: FDA-Public Use
  Company Number: US-SA-2014SA123408

PATIENT
  Sex: Male

DRUGS (2)
  1. PLAVIX [Suspect]
     Active Substance: CLOPIDOGREL BISULFATE
     Route: 065
     Dates: start: 2001, end: 20121126
  2. ASPIRIN. [Concomitant]
     Active Substance: ASPIRIN
     Dates: end: 20121126

REACTIONS (5)
  - Cerebral haemorrhage [Fatal]
  - Cognitive disorder [Unknown]
  - Aspiration [Fatal]
  - Motor dysfunction [Unknown]
  - Haemorrhage intracranial [Fatal]

NARRATIVE: CASE EVENT DATE: 20121126
